FAERS Safety Report 5141874-9 (Version None)
Quarter: 2006Q4

REPORT INFORMATION
  Report Type: 
  Country: None (occurrence: None)
  Receive Date: 20061027
  Receipt Date: 20061017
  Transmission Date: 20070319
  Serious: Yes (Other)
  Sender: FDA-Public Use
  Company Number: L06-ITA-04329-01

PATIENT
  Age: 75 Year
  Sex: Female

DRUGS (9)
  1. MEMANTINE HCL [Suspect]
     Indication: DEMENTIA ALZHEIMER'S TYPE
  2. MEMANTINE HCL [Suspect]
     Indication: DEMENTIA ALZHEIMER'S TYPE
     Dosage: 5 MG QD
  3. ATORVASTATIN CALCIUM [Concomitant]
  4. BISPHOSPHONATE [Concomitant]
  5. DONEPEZIL HCL [Concomitant]
  6. PAROXETINE HCL [Concomitant]
  7. TRAZODONE HCL [Concomitant]
  8. FOLIC ACID [Concomitant]
  9. VITAMIN E [Concomitant]

REACTIONS (3)
  - BRADYKINESIA [None]
  - HALLUCINATION, VISUAL [None]
  - MUSCLE RIGIDITY [None]
